FAERS Safety Report 9828110 (Version 1)
Quarter: 2014Q1

REPORT INFORMATION
  Report Type: Spontaneous
  Country: US (occurrence: US)
  Receive Date: 20140117
  Receipt Date: 20140117
  Transmission Date: 20141002
  Serious: No
  Sender: FDA-Public Use
  Company Number: US-GILEAD-2010-0033873

PATIENT
  Sex: 0

DRUGS (3)
  1. ATRIPLA [Suspect]
     Indication: HIV INFECTION
  2. INH [Concomitant]
     Indication: TUBERCULOSIS
  3. RIFABUTIN [Concomitant]
     Indication: TUBERCULOSIS

REACTIONS (1)
  - Liver function test abnormal [Unknown]
